FAERS Safety Report 9720105 (Version 2)
Quarter: 2017Q3

REPORT INFORMATION
  Report Type: Spontaneous
  Country: JP (occurrence: JP)
  Receive Date: 20131128
  Receipt Date: 20170918
  Transmission Date: 20171128
  Serious: Yes (Hospitalization, Other)
  Sender: FDA-Public Use
  Company Number: JP-BRISTOL-MYERS SQUIBB COMPANY-19842483

PATIENT
  Age: 78 Year
  Sex: Female

DRUGS (2)
  1. PACLITAXEL. [Suspect]
     Active Substance: PACLITAXEL
     Indication: COLON NEOPLASM
     Dosage: CYCLES: 04
     Route: 065
     Dates: start: 200802
  2. CARBOPLATIN. [Suspect]
     Active Substance: CARBOPLATIN
     Indication: COLON NEOPLASM
     Dosage: CYCLES: 04
     Route: 065
     Dates: start: 200802

REACTIONS (1)
  - Pulmonary trichosporonosis [Recovering/Resolving]
